FAERS Safety Report 4485872-7 (Version None)
Quarter: 2004Q3

REPORT INFORMATION
  Report Type: 
  Country: None (occurrence: None)
  Receive Date: 20040921
  Receipt Date: 20030916
  Transmission Date: 20050211
  Serious: Yes (Death, Other)
  Sender: FDA-Public Use
  Company Number: 163-20785-03090765

PATIENT
  Age: 71 Year
  Sex: Female
  Weight: 70 kg

DRUGS (6)
  1. THALOMID [Suspect]
     Indication: MULTIPLE MYELOMA
     Dosage: 50 - 150MG, QD, ORAL; SEE IMAGE
     Route: 048
     Dates: start: 20020115, end: 20020724
  2. THALOMID [Suspect]
     Indication: MULTIPLE MYELOMA
     Dosage: 50 - 150MG, QD, ORAL; SEE IMAGE
     Route: 048
     Dates: start: 20020724, end: 20030901
  3. PREDNISONE [Suspect]
     Indication: MULTIPLE MYELOMA
     Dosage: 50 MG, QOD
     Dates: start: 20020724, end: 20030901
  4. DOXIL [Suspect]
     Dates: start: 20020115, end: 20020724
  5. VINCRISTINE [Suspect]
     Dates: start: 20020115, end: 20020724
  6. DECADRON [Suspect]
     Dosage: 40 MG, X 4 W/TAPER, ORAL; SEE IMAGE
     Route: 048
     Dates: start: 20020115, end: 20020724

REACTIONS (10)
  - ABDOMINAL DISTENSION [None]
  - ACUTE MYELOID LEUKAEMIA [None]
  - ARRHYTHMIA [None]
  - DEATH [None]
  - DISEASE PROGRESSION [None]
  - HYPOTENSION [None]
  - JAUNDICE [None]
  - MULTI-ORGAN FAILURE [None]
  - PAIN [None]
  - PYREXIA [None]
